FAERS Safety Report 4695767-1 (Version None)
Quarter: 2005Q2

REPORT INFORMATION
  Report Type: 
  Country: None (occurrence: None)
  Receive Date: 20050621
  Receipt Date: 20050505
  Transmission Date: 20051028
  Serious: Yes (Death, Hospitalization)
  Sender: FDA-Public Use
  Company Number: GB-BRISTOL-MYERS SQUIBB COMPANY-12965018

PATIENT
  Age: 76 Year
  Sex: Female

DRUGS (15)
  1. CYCLOPHOSPHAMIDE [Suspect]
     Indication: VASCULITIS
     Route: 042
     Dates: start: 20050412, end: 20050412
  2. MESNA [Concomitant]
     Indication: PROPHYLAXIS
     Route: 042
     Dates: start: 20050412, end: 20050412
  3. TINZAPARIN SODIUM [Concomitant]
  4. CIPROFLOXACIN HCL [Concomitant]
     Dates: start: 20050408, end: 20050415
  5. ATENOLOL [Concomitant]
     Dates: start: 20050407
  6. PREDNISOLONE [Concomitant]
     Dates: start: 20050408
  7. PARACETAMOL [Concomitant]
  8. AMIODARONE [Concomitant]
     Dates: start: 20050408
  9. PERINDOPRIL [Concomitant]
     Dates: start: 20050408
  10. COTRIM [Concomitant]
     Dates: start: 20050413, end: 20050413
  11. CALCICHEW D3 [Concomitant]
  12. FERROUS SULFATE [Concomitant]
  13. CYCLIZINE [Concomitant]
  14. HALOPERIDOL [Concomitant]
  15. MULTI-VITAMINS [Concomitant]

REACTIONS (4)
  - ACUTE RESPIRATORY DISTRESS SYNDROME [None]
  - HEPATIC FAILURE [None]
  - LEFT VENTRICULAR FAILURE [None]
  - PNEUMONIA [None]
